FAERS Safety Report 13735131 (Version 1)
Quarter: 2017Q3

REPORT INFORMATION
  Report Type: Report from Study
  Country: DE (occurrence: DE)
  Receive Date: 20170710
  Receipt Date: 20170710
  Transmission Date: 20171127
  Serious: Yes (Death, Hospitalization)
  Sender: FDA-Public Use
  Company Number: DE-ROCHE-1959758

PATIENT
  Age: 66 Year
  Sex: Female

DRUGS (7)
  1. VERAPAMIL [Concomitant]
     Active Substance: VERAPAMIL HYDROCHLORIDE
  2. PREDNISOLON [Concomitant]
     Active Substance: PREDNISOLONE
  3. CANDESARTAN. [Concomitant]
     Active Substance: CANDESARTAN
  4. XARELTO [Concomitant]
     Active Substance: RIVAROXABAN
  5. TOCILIZUMAB. [Suspect]
     Active Substance: TOCILIZUMAB
     Indication: RHEUMATOID ARTHRITIS
     Route: 058
     Dates: end: 20161014
  6. DICLOFENAC [Concomitant]
     Active Substance: DICLOFENAC
  7. OMEPRAZOL [Concomitant]
     Active Substance: OMEPRAZOLE

REACTIONS (7)
  - Pneumonia [Unknown]
  - Intervertebral discitis [Unknown]
  - Endocarditis bacterial [Fatal]
  - Septic shock [Fatal]
  - Meningitis [Unknown]
  - Lung abscess [Unknown]
  - Status epilepticus [Unknown]

NARRATIVE: CASE EVENT DATE: 20161021
